FAERS Safety Report 9641205 (Version 1)
Quarter: 2013Q4

REPORT INFORMATION
  Report Type: Spontaneous
  Country: US (occurrence: US)
  Receive Date: 20131023
  Receipt Date: 20131023
  Transmission Date: 20140711
  Serious: Yes (Other)
  Sender: FDA-Public Use
  Company Number: US-BAXTER-2013BAX041135

PATIENT
  Age: 49 Year
  Sex: Male

DRUGS (3)
  1. DIANEAL LOW CALCIUM [Suspect]
     Indication: PERITONEAL DIALYSIS
     Route: 033
     Dates: start: 201308
  2. DIANEAL LOW CALCIUM [Suspect]
     Route: 033
     Dates: start: 201308
  3. AUGMENTIN [Concomitant]
     Indication: PROSTATITIS
     Dates: start: 201307

REACTIONS (2)
  - Noninfectious peritonitis [Recovered/Resolved]
  - Peritoneal dialysis complication [Recovered/Resolved]
